FAERS Safety Report 12722198 (Version 9)
Quarter: 2016Q4

REPORT INFORMATION
  Report Type: Report from Study
  Country: None (occurrence: BE)
  Receive Date: 20160907
  Receipt Date: 20161110
  Transmission Date: 20170207
  Serious: Yes (Hospitalization)
  Sender: FDA-Public Use
  Company Number: BE-ABBVIE-16P-013-1582729-00

PATIENT
  Age: 77 Year
  Sex: Female

DRUGS (18)
  1. DUODOPA [Suspect]
     Active Substance: CARBIDOPA\LEVODOPA
     Dosage: AM DOSE=1.5ML; CD=2.1ML/H DURING 16HRS; ED=1.5ML
     Route: 050
     Dates: start: 20160908, end: 20160929
  2. PROLOPA HBS [Concomitant]
     Active Substance: BENSERAZIDE\LEVODOPA
     Indication: PRODUCT USED FOR UNKNOWN INDICATION
     Dosage: FORM STRENGTH: 100MG/25MG
  3. PROLOPA [Concomitant]
     Active Substance: BENSERAZIDE\LEVODOPA
     Indication: PARKINSON^S DISEASE
     Dosage: FORM STRENGTH: 200MG/50MG; DOSE= 0.25 TABLET
     Route: 048
  4. DUODOPA [Suspect]
     Active Substance: CARBIDOPA\LEVODOPA
     Dosage: AM= 1.5 ML; CD= 2.3 ML/H DURING 16 HRS; ED= 1.2 ML
     Route: 050
     Dates: start: 20160929, end: 20161020
  5. DUODOPA [Suspect]
     Active Substance: CARBIDOPA\LEVODOPA
     Indication: PARKINSON^S DISEASE
     Dosage: MD=2.5ML; CD=1.6ML/H FOR 16HRS; ED=1.5ML
     Route: 050
     Dates: start: 20120319, end: 20120403
  6. DUODOPA [Suspect]
     Active Substance: CARBIDOPA\LEVODOPA
     Dosage: AM= 2 ML; CD= 2.2 ML/H DURING 16 HRS; ED= 1.5 ML
     Route: 050
     Dates: start: 20160714, end: 20160827
  7. DUODOPA [Suspect]
     Active Substance: CARBIDOPA\LEVODOPA
     Dosage: AM= 1.8 ML; CD= 2.3 ML/H DURING 16 HRS; ED= 0.8 ML
     Route: 050
     Dates: start: 20161020
  8. DUODOPA [Suspect]
     Active Substance: CARBIDOPA\LEVODOPA
     Dosage: AM: 1.8 ML; CD: 2.6 ML/H FOR 16 HRS; ED: 1.5 ML
     Route: 050
     Dates: start: 20160330, end: 20160611
  9. PROLOPA [Concomitant]
     Active Substance: BENSERAZIDE\LEVODOPA
     Dosage: FORM STRENGTH: 200MG/50MG; 5 TIMES PER DAY AS EMERGENCY MEDICATION
  10. DUODOPA [Suspect]
     Active Substance: CARBIDOPA\LEVODOPA
     Dosage: DOSES CONTINUOUSLY MONITORED AND ADAPTED
     Route: 050
     Dates: start: 20120403, end: 20151105
  11. DUODOPA [Suspect]
     Active Substance: CARBIDOPA\LEVODOPA
     Dosage: MD=1.8ML; CD=2.2ML/H FOR 16HRS; ED=1.5ML
     Route: 050
     Dates: start: 20151105, end: 20160310
  12. DUODOPA [Suspect]
     Active Substance: CARBIDOPA\LEVODOPA
     Dosage: MD=2ML; CD=2.4ML/H FOR 16HRS; ED=1.5ML
     Route: 050
     Dates: start: 20160310, end: 20160330
  13. REQUIP [Concomitant]
     Active Substance: ROPINIROLE HYDROCHLORIDE
     Indication: PARKINSON^S DISEASE
     Route: 048
  14. REQUIP [Concomitant]
     Active Substance: ROPINIROLE HYDROCHLORIDE
  15. DUODOPA [Suspect]
     Active Substance: CARBIDOPA\LEVODOPA
     Dosage: AM DOSE=1.8ML, CD=2.5ML/H FOR 16HRS AND ED=1.5ML
     Route: 050
     Dates: start: 20160611, end: 20160714
  16. DUODOPA [Suspect]
     Active Substance: CARBIDOPA\LEVODOPA
     Dosage: AM= 1.8 ML; CD= 2.4 ML/H DURING 16 HRS; ED= 0.8 ML
     Route: 050
     Dates: start: 20161105
  17. DUODOPA [Suspect]
     Active Substance: CARBIDOPA\LEVODOPA
     Dosage: AM= 2 ML; CD= 2.1 ML/H DURING 16 HRS; ED= 1.5 ML
     Route: 050
     Dates: start: 20160827, end: 20160908
  18. DUODOPA [Suspect]
     Active Substance: CARBIDOPA\LEVODOPA
     Dosage: AM= 1.8 ML; CD= 2.3 ML/H DURING 16 HRS; ED= 0.8 ML
     Route: 050
     Dates: end: 20161105

REACTIONS (23)
  - Dyskinesia [Not Recovered/Not Resolved]
  - Dizziness [Unknown]
  - Judgement impaired [Unknown]
  - Drug ineffective [Unknown]
  - Device issue [Unknown]
  - Restlessness [Unknown]
  - Fear [Unknown]
  - Device dislocation [Unknown]
  - Inappropriate schedule of drug administration [Not Recovered/Not Resolved]
  - Incorrect route of drug administration [Unknown]
  - Musculoskeletal stiffness [Unknown]
  - Device occlusion [Unknown]
  - Fall [Recovered/Resolved]
  - Anxiety [Unknown]
  - Nervousness [Unknown]
  - Tremor [Unknown]
  - Pain in extremity [Unknown]
  - Pain [Not Recovered/Not Resolved]
  - Drug effect delayed [Unknown]
  - On and off phenomenon [Unknown]
  - Abasia [Unknown]
  - Device alarm issue [Unknown]
  - Headache [Unknown]

NARRATIVE: CASE EVENT DATE: 20160617
